FAERS Safety Report 10598118 (Version 1)
Quarter: 2014Q4

REPORT INFORMATION
  Report Type: Spontaneous
  Country: US (occurrence: None)
  Receive Date: 20141120
  Receipt Date: 20141120
  Transmission Date: 20150529
  Serious: No
  Sender: FDA-Public Use
  Company Number: None

PATIENT
  Age: 24 Year
  Sex: Male

DRUGS (1)
  1. FLUOXETINE [Suspect]
     Active Substance: FLUOXETINE\FLUOXETINE HYDROCHLORIDE
     Indication: PRODUCT USED FOR UNKNOWN INDICATION
     Dosage: 2 PILLS, ONCE DAILY, TAKEN BY MOUTH.
     Route: 048

REACTIONS (3)
  - Premature ejaculation [None]
  - Sexual dysfunction [None]
  - Erectile dysfunction [None]

NARRATIVE: CASE EVENT DATE: 20141119
